FAERS Safety Report 23667509 (Version 3)
Quarter: 2024Q2

REPORT INFORMATION
  Report Type: Spontaneous
  Country: JP (occurrence: JP)
  Receive Date: 20240325
  Receipt Date: 20240521
  Transmission Date: 20240716
  Serious: Yes (Life-Threatening, Hospitalization, Other)
  Sender: FDA-Public Use
  Company Number: JP-UCBJ-CD202402421UCBPHAPROD

PATIENT
  Age: 69 Year
  Sex: Male
  Weight: 73 kg

DRUGS (6)
  1. VIMPAT [Suspect]
     Active Substance: LACOSAMIDE
     Indication: Epilepsy
     Dosage: 50 MILLIGRAM, 2X/DAY (BID)
     Route: 048
     Dates: start: 20231026
  2. ROSUVASTATIN CALCIUM [Concomitant]
     Active Substance: ROSUVASTATIN CALCIUM
     Indication: Dyslipidaemia
     Dosage: 2.5 MILLIGRAM, 1 DAY
     Route: 048
  3. DIETARY SUPPLEMENT\PROBIOTICS [Concomitant]
     Active Substance: DIETARY SUPPLEMENT\PROBIOTICS NOS
     Indication: Product used for unknown indication
     Dosage: UNK, 8 HR
     Route: 048
  4. NIZATIDINE [Concomitant]
     Active Substance: NIZATIDINE
     Indication: Product used for unknown indication
     Dosage: 75 MILLIGRAM, 2X/DAY (BID)
     Route: 048
  5. ECABET SODIUM [Concomitant]
     Active Substance: ECABET SODIUM
     Indication: Product used for unknown indication
     Dosage: 1.5 GRAM, 2X/DAY (BID)
     Route: 048
  6. HERBALS [Concomitant]
     Active Substance: HERBALS
     Indication: Product used for unknown indication
     Dosage: 5 GRAM, 3X/DAY (TID)
     Route: 048

REACTIONS (2)
  - Atrioventricular block complete [Recovering/Resolving]
  - Cardiac pacemaker insertion [Recovering/Resolving]

NARRATIVE: CASE EVENT DATE: 20240124
